FAERS Safety Report 6458558-7 (Version None)
Quarter: 2009Q4

REPORT INFORMATION
  Report Type: 
  Country: None (occurrence: None)
  Receive Date: 20091126
  Receipt Date: 20091120
  Transmission Date: 20100525
  Serious: Yes (Hospitalization)
  Sender: FDA-Public Use
  Company Number: US-BIOGENIDEC-2009BI038451

PATIENT
  Age: 39 Year
  Sex: Female
  Weight: 103 kg

DRUGS (4)
  1. AVONEX [Suspect]
     Indication: MULTIPLE SCLEROSIS
     Route: 030
  2. AVONEX [Suspect]
     Indication: CROHN'S DISEASE
     Route: 030
  3. AVONEX [Suspect]
     Route: 030
     Dates: start: 20090101
  4. AVONEX [Suspect]
     Route: 030
     Dates: start: 20090101

REACTIONS (13)
  - CROHN'S DISEASE [None]
  - CRYING [None]
  - DECREASED APPETITE [None]
  - DENTAL CARIES [None]
  - DIARRHOEA [None]
  - GAIT DISTURBANCE [None]
  - IMMUNE SYSTEM DISORDER [None]
  - MULTIPLE SCLEROSIS RELAPSE [None]
  - OFF LABEL USE [None]
  - PERIODONTAL DISEASE [None]
  - RENAL DISORDER [None]
  - URINARY INCONTINENCE [None]
  - WEIGHT DECREASED [None]
